FAERS Safety Report 8820691 (Version 3)
Quarter: 2012Q4

REPORT INFORMATION
  Report Type: Report from Study
  Country: JP (occurrence: JP)
  Receive Date: 20121002
  Receipt Date: 20121219
  Transmission Date: 20130627
  Serious: Yes (Hospitalization, Other)
  Sender: FDA-Public Use
  Company Number: PHHY2012JP085058

PATIENT
  Age: 45 Year
  Sex: Male

DRUGS (8)
  1. AMN107 [Suspect]
     Indication: CHRONIC MYELOID LEUKAEMIA
     Dosage: 800 mg, UNK
     Route: 048
     Dates: start: 20090601
  2. TAKEPRON [Concomitant]
     Dosage: 15 mg, UNK
     Route: 048
     Dates: start: 20090310
  3. SELBEX [Concomitant]
     Indication: PROPHYLAXIS
     Dosage: 150 mg, UNK
     Route: 048
     Dates: start: 19990616
  4. INHIBACE [Concomitant]
     Dosage: 1 mg, UNK
     Dates: start: 20000221
  5. BIOFERMIN [Concomitant]
     Indication: PROPHYLAXIS
     Dosage: 3 DF, UNK
     Dates: start: 20090616, end: 20100413
  6. BASEN [Concomitant]
     Dosage: 3 DF, UNK
     Route: 048
  7. AMARYL [Concomitant]
     Dosage: 2 DF, UNK
     Route: 048
  8. AMARYL [Concomitant]
     Dosage: 4 DF, UNK
     Route: 048

REACTIONS (3)
  - Cholecystitis [Recovered/Resolved]
  - Lipase increased [Recovered/Resolved]
  - Blood phosphorus increased [Recovered/Resolved]
